FAERS Safety Report 6004759-1 (Version None)
Quarter: 2008Q4

REPORT INFORMATION
  Report Type: 
  Country: None (occurrence: None)
  Receive Date: 20081216
  Receipt Date: 20081205
  Transmission Date: 20090506
  Serious: Yes (Other)
  Sender: FDA-Public Use
  Company Number: US-PFIZER INC-2008152360

PATIENT
  Age: 51 Year
  Sex: Female

DRUGS (4)
  1. FLAGYL [Suspect]
     Dosage: UNK
     Dates: start: 19910101
  2. NEURONTIN [Suspect]
     Dosage: UNK
     Dates: start: 20080101
  3. LYRICA [Suspect]
  4. LEVAQUIN [Suspect]
     Dosage: UNK
     Dates: start: 20060101, end: 20060101

REACTIONS (11)
  - ATAXIA [None]
  - BLEPHAROSPASM [None]
  - BLINDNESS [None]
  - BLOOD PRESSURE SYSTOLIC INCREASED [None]
  - CONFUSIONAL STATE [None]
  - DYSPNOEA [None]
  - FIBROMYALGIA [None]
  - INSOMNIA [None]
  - MULTIPLE SCLEROSIS [None]
  - MYOSITIS [None]
  - TENDONITIS [None]
